FAERS Safety Report 11475839 (Version 1)
Quarter: 2015Q3

REPORT INFORMATION
  Report Type: Spontaneous
  Country: US (occurrence: US)
  Receive Date: 20150909
  Receipt Date: 20150909
  Transmission Date: 20151125
  Serious: No
  Sender: FDA-Public Use
  Company Number: US-JAZZ-2014-US-008989

PATIENT
  Age: 46 Year
  Sex: Male
  Weight: 86.16 kg

DRUGS (1)
  1. XYREM [Suspect]
     Active Substance: SODIUM OXYBATE
     Indication: INSOMNIA
     Dosage: 2.25 G, BID
     Route: 048
     Dates: start: 201406

REACTIONS (2)
  - Off label use [Unknown]
  - Dental operation [Recovered/Resolved]

NARRATIVE: CASE EVENT DATE: 20140717
